FAERS Safety Report 11346327 (Version 1)
Quarter: 2015Q3

REPORT INFORMATION
  Report Type: Spontaneous
  Country: US (occurrence: US)
  Receive Date: 20150806
  Receipt Date: 20150806
  Transmission Date: 20151125
  Serious: No
  Sender: FDA-Public Use
  Company Number: ALCN2015US004594

PATIENT
  Age: 94 Year
  Sex: Male

DRUGS (1)
  1. PILOCARPINE HCL/EPINEPHRINE [Suspect]
     Active Substance: EPINEPHRINE\PILOCARPINE
     Indication: GLAUCOMA
     Dosage: 1 GTT, TID
     Route: 047
     Dates: start: 201507, end: 20150720

REACTIONS (1)
  - Headache [Recovered/Resolved]
